FAERS Safety Report 5211150-4 (Version None)
Quarter: 2006Q4

REPORT INFORMATION
  Report Type: 
  Country: None (occurrence: None)
  Receive Date: 20061114
  Receipt Date: 20060807
  Transmission Date: 20070319
  Serious: No
  Sender: FDA-Public Use
  Company Number: S06-USA-00927-01

PATIENT
  Age: 87 Year
  Sex: Female

DRUGS (5)
  1. NAMENDA [Suspect]
     Indication: DEMENTIA
     Dosage: 10 MG BID PO
     Route: 048
     Dates: start: 20051101, end: 20060328
  2. NAMENDA [Suspect]
     Indication: DEMENTIA
     Dosage: 10 MG QD PO
     Route: 048
     Dates: start: 20060329, end: 20060803
  3. ARICEPT [Concomitant]
  4. EFFEXOR (VENLAFAXINE HYDROHCLORIDE) [Concomitant]
  5. TOPROL-XL [Concomitant]

REACTIONS (7)
  - ABDOMINAL PAIN UPPER [None]
  - AGGRESSION [None]
  - BACK PAIN [None]
  - FATIGUE [None]
  - IRRITABILITY [None]
  - MENTAL IMPAIRMENT [None]
  - RESPIRATORY RATE INCREASED [None]
